FAERS Safety Report 7364022-3 (Version None)
Quarter: 2011Q1

REPORT INFORMATION
  Report Type: 
  Country: None (occurrence: None)
  Receive Date: 20110321
  Receipt Date: 20110307
  Transmission Date: 20110831
  Serious: Yes (Disabling)
  Sender: FDA-Public Use
  Company Number: US-ENDO PHARMACEUTICALS INC.-METO20110271

PATIENT
  Sex: Male

DRUGS (1)
  1. METOCLOPRAMIDE HYDROCHLORIDE [Suspect]
     Dosage: UNKNOWN
     Route: 048
     Dates: start: 20010101, end: 20090101

REACTIONS (7)
  - MOVEMENT DISORDER [None]
  - TARDIVE DYSKINESIA [None]
  - INCORRECT DRUG ADMINISTRATION DURATION [None]
  - EXTRAPYRAMIDAL DISORDER [None]
  - CONDITION AGGRAVATED [None]
  - TREMOR [None]
  - PARKINSON'S DISEASE [None]
